FAERS Safety Report 7629856-6 (Version None)
Quarter: 2011Q3

REPORT INFORMATION
  Report Type: 
  Country: None (occurrence: None)
  Receive Date: 20110722
  Receipt Date: 20110124
  Transmission Date: 20111222
  Serious: No
  Sender: FDA-Public Use
  Company Number: US-MYLANLABS-2011S1000191

PATIENT
  Age: 8 Year
  Sex: Female

DRUGS (3)
  1. CLONIDINE HYDROCHLORIDE [Suspect]
     Indication: ATTENTION DEFICIT/HYPERACTIVITY DISORDER
     Dosage: 1/2 TAB QAM AND 1 QPM
     Route: 048
     Dates: start: 20101214, end: 20101216
  2. CLONIDINE HYDROCHLORIDE [Suspect]
     Dosage: 1/2 TAB QAM AND 1 QPM
     Route: 048
     Dates: start: 20101214, end: 20101216
  3. VYVANSE [Concomitant]
     Indication: ATTENTION DEFICIT/HYPERACTIVITY DISORDER

REACTIONS (2)
  - DRUG INEFFECTIVE FOR UNAPPROVED INDICATION [None]
  - PSYCHOMOTOR HYPERACTIVITY [None]
